FAERS Safety Report 7364954-6 (Version None)
Quarter: 2011Q1

REPORT INFORMATION
  Report Type: 
  Country: None (occurrence: None)
  Receive Date: 20110321
  Receipt Date: 20110310
  Transmission Date: 20110831
  Serious: Yes (Other)
  Sender: FDA-Public Use
  Company Number: GB-TEVA-271062ISR

PATIENT
  Age: 4 Year
  Sex: Male

DRUGS (9)
  1. ETOPOSIDE [Suspect]
     Indication: RHABDOMYOSARCOMA
     Route: 042
  2. IFOSFAMIDE [Suspect]
     Indication: RHABDOMYOSARCOMA
  3. VINCRISTINE [Suspect]
     Indication: RHABDOMYOSARCOMA
     Route: 042
  4. DOXORUBICIN HCL [Suspect]
     Indication: RHABDOMYOSARCOMA
     Route: 042
  5. RADIATION [Suspect]
     Indication: RHABDOMYOSARCOMA
  6. CISPLATIN [Suspect]
     Indication: MESOTHELIOMA
  7. DACTINOMYCIN [Suspect]
     Indication: RHABDOMYOSARCOMA
     Route: 042
  8. CISPLATIN [Suspect]
     Indication: RHABDOMYOSARCOMA
  9. CYCLOPHOSPHAMIDE [Suspect]
     Indication: RHABDOMYOSARCOMA

REACTIONS (2)
  - NEPHROPATHY TOXIC [None]
  - FANCONI SYNDROME [None]
